FAERS Safety Report 23705824 (Version 2)
Quarter: 2025Q1

REPORT INFORMATION
  Report Type: Report from Study
  Country: CA (occurrence: CA)
  Receive Date: 20240404
  Receipt Date: 20250212
  Transmission Date: 20250409
  Serious: Yes (Hospitalization, Other)
  Sender: CELLTRION
  Company Number: CA-CELLTRION INC.-2023CA020989

PATIENT

DRUGS (5)
  1. ADALIMUMAB-AATY [Suspect]
     Active Substance: ADALIMUMAB-AATY
     Indication: Crohn^s disease
     Dosage: 40 MG, EVERY 7 DAYS/1 EVERY 1 WEEK
     Route: 058
     Dates: start: 20230802
  2. ADALIMUMAB-AATY [Suspect]
     Active Substance: ADALIMUMAB-AATY
     Dosage: 40 MG, EVERY 1/WEEK
     Route: 058
     Dates: start: 20231107
  3. IRON [Concomitant]
     Active Substance: IRON
     Indication: Anaemia
  4. OZEMPIC [Concomitant]
     Active Substance: SEMAGLUTIDE
  5. SEMAGLUTIDE [Suspect]
     Active Substance: SEMAGLUTIDE

REACTIONS (5)
  - Amnesia [Unknown]
  - Loss of consciousness [Unknown]
  - Syncope [Unknown]
  - Pneumonia [Unknown]
  - Product dose omission in error [Unknown]

NARRATIVE: CASE EVENT DATE: 20230101
